FAERS Safety Report 6656007-7 (Version None)
Quarter: 2010Q1

REPORT INFORMATION
  Report Type: 
  Country: None (occurrence: None)
  Receive Date: 20100329
  Receipt Date: 20100317
  Transmission Date: 20100710
  Serious: Yes (Hospitalization, Other)
  Sender: FDA-Public Use
  Company Number: US-PFIZER INC-2010038826

PATIENT
  Sex: Male

DRUGS (8)
  1. AMLODIPINE BESYLATE [Suspect]
     Indication: HYPERTENSION
     Dosage: 5 MG, 1X/DAY
     Route: 048
     Dates: start: 20100101, end: 20100101
  2. BENICAR [Suspect]
     Indication: HYPERTENSION
     Dosage: 20 MG, 1X/DAY
     Route: 048
     Dates: start: 20070101, end: 20080101
  3. BENICAR [Suspect]
     Dosage: 20 MG, 1X/DAY
     Route: 048
     Dates: start: 20080101, end: 20100201
  4. BENICAR HCT [Suspect]
     Indication: HYPERTENSION
     Dosage: 20/12.5MG, 1X/DAY
     Route: 048
     Dates: start: 20080101, end: 20080101
  5. BENICAR HCT [Suspect]
     Dosage: 20/12.5 MG, 1X/DAY
     Route: 048
     Dates: start: 20100201
  6. PLAVIX [Concomitant]
  7. NEFAZODONE [Concomitant]
     Indication: ANXIETY
     Dosage: 500 MG, QHS
  8. LIPITOR [Concomitant]
     Dosage: 10 MG, 1X/DAY

REACTIONS (5)
  - BLOOD PRESSURE INCREASED [None]
  - CEREBROVASCULAR ACCIDENT [None]
  - FEELING HOT [None]
  - HOT FLUSH [None]
  - OEDEMA PERIPHERAL [None]
